FAERS Safety Report 9273918 (Version 2)
Quarter: 2013Q3

REPORT INFORMATION
  Report Type: Report from Study
  Country: US (occurrence: US)
  Receive Date: 20130506
  Receipt Date: 20130719
  Transmission Date: 20140515
  Serious: Yes (Hospitalization, Other)
  Sender: FDA-Public Use
  Company Number: US-ABBOTT-13P-163-1082748-00

PATIENT
  Age: 36 Year
  Sex: Male
  Weight: 50.85 kg

DRUGS (4)
  1. HUMIRA [Suspect]
     Indication: CROHN^S DISEASE
     Dates: start: 201004, end: 20120304
  2. ASACOL [Concomitant]
     Indication: CROHN^S DISEASE
     Dosage: 1800MG DAILY
  3. MULTIVITAMIN [Concomitant]
     Indication: VITAMIN SUPPLEMENTATION
     Dosage: DAILY
  4. VITAMIN D [Concomitant]
     Indication: VITAMIN D DEFICIENCY

REACTIONS (7)
  - Faeces discoloured [Recovering/Resolving]
  - Rectal abscess [Not Recovered/Not Resolved]
  - Nausea [Unknown]
  - Vomiting [Unknown]
  - Diarrhoea [Unknown]
  - Abdominal pain [Recovering/Resolving]
  - Joint swelling [Unknown]
